FAERS Safety Report 6580479-X (Version None)
Quarter: 2010Q1

REPORT INFORMATION
  Report Type: 
  Country: None (occurrence: None)
  Receive Date: 20100212
  Receipt Date: 20100204
  Transmission Date: 20100710
  Serious: Yes (Death, Other)
  Sender: FDA-Public Use
  Company Number: HQWYE540330MAR05

PATIENT
  Sex: Female

DRUGS (7)
  1. PREMARIN [Suspect]
     Indication: HORMONE REPLACEMENT THERAPY
     Dosage: UNSPECIFIED
     Route: 048
     Dates: start: 19850101, end: 20030101
  2. ESTRATEST [Suspect]
  3. ESTRADERM [Suspect]
  4. ESTRACE [Suspect]
  5. PREMPRO [Suspect]
  6. CLIMARA [Suspect]
  7. ESTRATEST H.S. [Suspect]

REACTIONS (1)
  - OVARIAN CANCER METASTATIC [None]
